FAERS Safety Report 4889302-2 (Version None)
Quarter: 2006Q1

REPORT INFORMATION
  Report Type: 
  Country: None (occurrence: None)
  Receive Date: 20060120
  Receipt Date: 20060110
  Transmission Date: 20060701
  Serious: Yes (Death, Life-Threatening, Hospitalization)
  Sender: FDA-Public Use
  Company Number: US-2005-010077

PATIENT
  Age: 39 Year
  Sex: Male

DRUGS (15)
  1. CAMPATH [Suspect]
     Indication: MULTIPLE SCLEROSIS
     Dosage: 24 MG, 1X/DAY; INTRAVENOUS, 24 MG, 1X/DAY; INTRAVENOUS
     Route: 042
     Dates: start: 20031027, end: 20031031
  2. CAMPATH [Suspect]
     Indication: MULTIPLE SCLEROSIS
     Dosage: 24 MG, 1X/DAY; INTRAVENOUS, 24 MG, 1X/DAY; INTRAVENOUS
     Route: 042
     Dates: start: 20041024, end: 20041026
  3. DIPHENHYDRAMINE [Concomitant]
  4. DEXAMETHASONE TAB [Concomitant]
  5. ACETAMINOPHEN [Concomitant]
  6. ESOMEPRAZOLE [Concomitant]
  7. DOXYLAMINE [Concomitant]
  8. VALACYCLOVIR HCL [Concomitant]
  9. RANITIDINE [Concomitant]
  10. TYLENOL ALLERGY SINUS (CHLORPHENAMINE MALEATE, PSEUDOEPHEDRINE HYDROCH [Concomitant]
  11. CETIRIZINE [Concomitant]
  12. L-LYSINE (LYSINE) [Concomitant]
  13. OMEGA 3 (FISH OIL) [Concomitant]
  14. EVENING PRIMOSE OIL (OENOTHERA BIENNIS OIL) [Concomitant]
  15. TEA, GREEN (CAMELLIA SINENSIS) [Concomitant]

REACTIONS (7)
  - ANTI-PLATELET ANTIBODY POSITIVE [None]
  - CORNEAL REFLEX DECREASED [None]
  - ECCHYMOSIS [None]
  - LOSS OF CONSCIOUSNESS [None]
  - PUPILLARY REFLEX IMPAIRED [None]
  - SUBARACHNOID HAEMORRHAGE [None]
  - THROMBOCYTOPENIA [None]
